FAERS Safety Report 20018578 (Version 1)
Quarter: 2021Q4

REPORT INFORMATION
  Report Type: Spontaneous
  Country: US (occurrence: US)
  Receive Date: 20211101
  Receipt Date: 20211101
  Transmission Date: 20220304
  Serious: No
  Sender: FDA-Public Use
  Company Number: ENDG21-01102

PATIENT
  Age: 63 Year
  Sex: Female

DRUGS (4)
  1. AMITRIPTYLINE HYDROCHLORIDE [Suspect]
     Active Substance: AMITRIPTYLINE HYDROCHLORIDE
     Indication: Sleep disorder
     Dosage: 1.5 DF, DAILY (1 TABLET BETWEEN 6:30 PM AND 8 PM AND 1/2 TAB BEFORE GOING TO BED)
     Route: 065
     Dates: start: 20210210, end: 20210214
  2. XANAX [Concomitant]
     Active Substance: ALPRAZOLAM
     Indication: Product used for unknown indication
  3. NORCO [Concomitant]
     Active Substance: ACETAMINOPHEN\HYDROCODONE BITARTRATE
     Indication: Product used for unknown indication
  4. MOTRIN                             /00109201/ [Concomitant]
     Indication: Product used for unknown indication

REACTIONS (6)
  - Feeling abnormal [Recovered/Resolved]
  - Bone pain [Recovered/Resolved]
  - Insomnia [Not Recovered/Not Resolved]
  - Off label use [Recovered/Resolved]
  - Product formulation issue [Recovered/Resolved]
  - Wrong technique in product usage process [Recovered/Resolved]

NARRATIVE: CASE EVENT DATE: 20210210
